FAERS Safety Report 19123828 (Version 1)
Quarter: 2021Q2

REPORT INFORMATION
  Report Type: Spontaneous
  Country: IN (occurrence: IN)
  Receive Date: 20210413
  Receipt Date: 20210413
  Transmission Date: 20210717
  Serious: No
  Sender: FDA-Public Use
  Company Number: IN-LUPIN PHARMACEUTICALS INC.-2021-04427

PATIENT
  Age: 23 Year
  Sex: Female

DRUGS (1)
  1. CLOBETASOL [Suspect]
     Active Substance: CLOBETASOL
     Indication: SUBCORNEAL PUSTULAR DERMATOSIS
     Dosage: UNK;CREAM?TOPICAL STEROID WAS TAPERED TO ONCE A DAY APPLICATION FOR NEXT 7 DAYS. THREE DAYS LATER, S
     Route: 061

REACTIONS (2)
  - Normal newborn [Unknown]
  - Maternal exposure during pregnancy [Unknown]
